FAERS Safety Report 7133891-4 (Version None)
Quarter: 2010Q4

REPORT INFORMATION
  Report Type: 
  Country: None (occurrence: None)
  Receive Date: 20101203
  Receipt Date: 20100831
  Transmission Date: 20110411
  Serious: Yes (Hospitalization)
  Sender: FDA-Public Use
  Company Number: US-BAYER-201028694NA

PATIENT

DRUGS (10)
  1. YASMIN [Suspect]
     Indication: ORAL CONTRACEPTION
     Route: 048
     Dates: start: 20020401, end: 20020701
  2. YASMIN [Suspect]
  3. YASMIN [Suspect]
     Indication: MENSTRUAL CYCLE MANAGEMENT
  4. MOTRIN [Concomitant]
  5. TPN [Concomitant]
  6. WELLBUTRIN [Concomitant]
  7. TYLENOL ES [Concomitant]
  8. NORCO [Concomitant]
  9. IBUPROFEN [Concomitant]
  10. FLAGYL [Concomitant]

REACTIONS (5)
  - FALL [None]
  - MUSCLE SPASMS [None]
  - OEDEMA PERIPHERAL [None]
  - PAIN IN EXTREMITY [None]
  - PULMONARY EMBOLISM [None]
